FAERS Safety Report 23054414 (Version 2)
Quarter: 2024Q2

REPORT INFORMATION
  Report Type: Spontaneous
  Country: US (occurrence: US)
  Receive Date: 20231011
  Receipt Date: 20240509
  Transmission Date: 20240716
  Serious: No
  Sender: FDA-Public Use
  Company Number: US-ELI_LILLY_AND_COMPANY-US202310003341

PATIENT
  Age: 31 Year
  Sex: Female
  Weight: 117.91 kg

DRUGS (10)
  1. MOUNJARO [Suspect]
     Active Substance: TIRZEPATIDE
     Indication: Gestational diabetes
     Dosage: UNK, UNKNOWN
     Route: 058
  2. MOUNJARO [Suspect]
     Active Substance: TIRZEPATIDE
     Indication: Gestational diabetes
     Dosage: 2.5 MG, UNKNOWN
     Route: 058
     Dates: start: 202302
  3. MOUNJARO [Suspect]
     Active Substance: TIRZEPATIDE
     Indication: Gestational diabetes
     Dosage: 2.5 MG, UNKNOWN
     Route: 058
     Dates: start: 202302
  4. MOUNJARO [Suspect]
     Active Substance: TIRZEPATIDE
     Indication: Gestational diabetes
     Dosage: 2.5 MG, UNKNOWN
     Route: 058
     Dates: start: 202302
  5. MOUNJARO [Suspect]
     Active Substance: TIRZEPATIDE
     Indication: Gestational diabetes
     Dosage: 2.5 MG, UNKNOWN
     Route: 058
     Dates: start: 202302
  6. MOUNJARO [Suspect]
     Active Substance: TIRZEPATIDE
     Indication: Gestational diabetes
     Dosage: 15 MG, UNKNOWN
     Route: 058
  7. MOUNJARO [Suspect]
     Active Substance: TIRZEPATIDE
     Indication: Gestational diabetes
     Dosage: 15 MG, UNKNOWN
     Route: 058
  8. MOUNJARO [Suspect]
     Active Substance: TIRZEPATIDE
     Indication: Gestational diabetes
     Dosage: 15 MG, UNKNOWN
     Route: 058
  9. MOUNJARO [Suspect]
     Active Substance: TIRZEPATIDE
     Indication: Gestational diabetes
     Dosage: 15 MG, UNKNOWN
     Route: 058
  10. MOUNJARO [Suspect]
     Active Substance: TIRZEPATIDE
     Indication: Gestational diabetes
     Dosage: 15 MG, UNKNOWN
     Route: 058

REACTIONS (5)
  - Hypertension [Unknown]
  - Maternal exposure during pregnancy [Recovered/Resolved]
  - Maternal exposure during breast feeding [Unknown]
  - Incorrect dose administered [Unknown]
  - Off label use [Unknown]

NARRATIVE: CASE EVENT DATE: 20230201
